FAERS Safety Report 10019049 (Version 2)
Quarter: 2016Q1

REPORT INFORMATION
  Report Type: Spontaneous
  Country: US (occurrence: US)
  Receive Date: 20140318
  Receipt Date: 20160210
  Transmission Date: 20160525
  Serious: Yes (Other)
  Sender: FDA-Public Use
  Company Number: US-BRISTOL-MYERS SQUIBB COMPANY-20515383

PATIENT
  Age: 34 Year
  Sex: Female
  Weight: 85 kg

DRUGS (8)
  1. CALCIUM [Suspect]
     Active Substance: CALCIUM
     Indication: MINERAL SUPPLEMENTATION
     Dosage: 1000 MG, UNK
     Route: 048
  2. LEVOTHYROXINE. [Suspect]
     Active Substance: LEVOTHYROXINE
     Indication: RAYNAUD^S PHENOMENON
     Route: 065
  3. HEPARIN SODIUM INJ [Suspect]
     Active Substance: HEPARIN SODIUM
     Indication: PRENATAL CARE
     Dosage: 30 MG, BID
     Route: 058
  4. ASPIRIN. [Suspect]
     Active Substance: ASPIRIN
     Indication: PRENATAL CARE
     Dosage: 81 MG, QD
     Route: 048
  5. PREDNISONE. [Suspect]
     Active Substance: PREDNISONE
     Indication: PRENATAL CARE
     Dosage: 10 MG, QD
     Route: 048
  6. LEVOTHYROXINE. [Suspect]
     Active Substance: LEVOTHYROXINE
     Indication: HYPOTHYROIDISM
  7. METFORMIN HYDROCHLORIDE. [Suspect]
     Active Substance: METFORMIN HYDROCHLORIDE
     Indication: INSULIN RESISTANCE
     Dosage: 500 MG, QD
     Route: 065
  8. IMMUNOGLOBULIN [Suspect]
     Active Substance: HUMAN IMMUNOGLOBULIN G
     Indication: PRENATAL CARE
     Dosage: 400 MG/KG, UNK
     Route: 042

REACTIONS (5)
  - B-lymphocyte abnormalities [Unknown]
  - Abortion spontaneous [Unknown]
  - Maternal exposure during pregnancy [Recovered/Resolved]
  - Antiphospholipid antibodies [Unknown]
  - Off label use [Unknown]
